FAERS Safety Report 9190354 (Version 2)
Quarter: 2013Q1

REPORT INFORMATION
  Report Type: Report from Study
  Country: US (occurrence: US)
  Receive Date: 20130326
  Receipt Date: 20130328
  Transmission Date: 20140127
  Serious: Yes (Hospitalization, Other)
  Sender: FDA-Public Use
  Company Number: US-ASTELLAS-2013US003177

PATIENT
  Age: 78 None
  Sex: Female
  Weight: 69 kg

DRUGS (5)
  1. ERLOTINIB TABLET [Suspect]
     Indication: NON-SMALL CELL LUNG CANCER
     Dosage: 150 MG, UID/QD
     Route: 048
     Dates: start: 20120901, end: 201209
  2. ERLOTINIB TABLET [Suspect]
     Dosage: 100 MG, UID/QD
     Route: 048
     Dates: start: 201209, end: 201301
  3. ERLOTINIB TABLET [Suspect]
     Dosage: 150 MG, UID/QD
     Route: 048
     Dates: start: 201301, end: 20130219
  4. ERLOTINIB TABLET [Suspect]
     Dosage: 100 MG, UID/QD
     Route: 048
     Dates: start: 20130312
  5. OXYGEN [Concomitant]
     Indication: DYSPNOEA
     Dosage: UNK
     Route: 045
     Dates: start: 201209

REACTIONS (9)
  - Gastroenteritis viral [Recovered/Resolved]
  - Aortic aneurysm [Unknown]
  - Haematochezia [Recovered/Resolved]
  - Feeling cold [Unknown]
  - Fatigue [Unknown]
  - Diarrhoea [Unknown]
  - Dry skin [Unknown]
  - Dyspnoea [Unknown]
  - Abdominal pain upper [Unknown]
